FAERS Safety Report 6343425-X (Version None)
Quarter: 2009Q3

REPORT INFORMATION
  Report Type: 
  Country: None (occurrence: None)
  Receive Date: 20090908
  Receipt Date: 20090903
  Transmission Date: 20100115
  Serious: Yes (Death, Other)
  Sender: FDA-Public Use
  Company Number: PHHY2009JP09623

PATIENT
  Sex: Female
  Weight: 45 kg

DRUGS (31)
  1. ZOMETA [Suspect]
     Indication: MULTIPLE MYELOMA
     Dosage: UNSPECIFIED DOSE EVERY FOUR WEEKS
     Route: 042
     Dates: start: 20060801
  2. DECADRON [Suspect]
     Dosage: UNK
     Dates: start: 20081225
  3. TARIVID [Concomitant]
     Dosage: 10 ML, UNK
     Dates: start: 20090106
  4. TARIVID [Concomitant]
     Dosage: 10 ML, UNK
     Dates: end: 20090116
  5. OMEPRAL [Concomitant]
     Dosage: 20 MG, UNK
     Route: 048
     Dates: start: 20090106, end: 20090114
  6. OMEPRAL [Concomitant]
     Dosage: 40 MG, UNK
     Dates: start: 20090114
  7. LOXONIN [Concomitant]
     Dosage: 180 MG, UNK
     Route: 048
     Dates: start: 20090106, end: 20090114
  8. SELBEX [Concomitant]
     Dosage: 150 MG, UNK
     Route: 048
     Dates: start: 20090106, end: 20090114
  9. MAGMITT [Concomitant]
     Dosage: 1500 MG, UNK
     Route: 048
     Dates: start: 20090106, end: 20090114
  10. PREDNISOLONE [Concomitant]
     Dosage: 5 MG, UNK
     Route: 048
     Dates: start: 20090106, end: 20090114
  11. LENDORMIN D [Concomitant]
     Dosage: UNK
     Route: 048
     Dates: start: 20090106, end: 20090114
  12. PURSENNID [Concomitant]
     Dosage: UNK
     Route: 048
     Dates: start: 20090106, end: 20090114
  13. AMINO ACIDS/CARBOHYDRATES/MINERALS/VITAMINS, [Concomitant]
     Dosage: 1000 ML, UNK
     Route: 041
     Dates: start: 20090106, end: 20090123
  14. ORGADRONE [Concomitant]
     Dosage: 2 DF, UNK
     Route: 041
     Dates: start: 20090106, end: 20090114
  15. VICCILLIN [Concomitant]
     Dosage: 4 G, UNK
     Route: 041
     Dates: start: 20090106
  16. VICCILLIN [Concomitant]
     Dosage: 3 G, UNK
     Route: 041
     Dates: end: 20090113
  17. DALACIN-S [Concomitant]
     Dosage: 3 DF, UNK
     Route: 041
     Dates: start: 20090106
  18. DALACIN-S [Concomitant]
     Dosage: 2 DF, UNK
     Route: 041
     Dates: end: 20090108
  19. VITAMEDIN [Concomitant]
     Dosage: 1 DF, UNK
     Route: 041
     Dates: start: 20090106
  20. CARBENIN [Concomitant]
     Dosage: 6 G, UNK
     Route: 041
     Dates: start: 20090113
  21. ROPION [Concomitant]
     Dosage: 50 MG, UNK
     Route: 041
     Dates: start: 20090114
  22. ROPION [Concomitant]
     Dosage: 100 MG, UNK
     Route: 041
  23. ROPION [Concomitant]
     Dosage: 50 MG, UNK
     Route: 041
  24. ROPION [Concomitant]
     Dosage: 250 MG, UNK
     Route: 041
  25. ROPION [Concomitant]
     Dosage: 50 MG, UNK
     Route: 041
  26. ROPION [Concomitant]
     Dosage: 100 MG, UNK
     Route: 041
  27. ROPION [Concomitant]
     Dosage: 50 MG, UNK
     Route: 041
     Dates: end: 20090123
  28. ALEVIATIN [Concomitant]
     Dosage: 250 MG, UNK
     Route: 041
     Dates: start: 20090115, end: 20090119
  29. ADONA [Concomitant]
     Dosage: 50 MG, UNK
     Route: 041
     Dates: start: 20090116
  30. TRANSAMIN [Concomitant]
     Dosage: 1 DF, UNK
     Dates: start: 20090116
  31. TRANSAMIN [Concomitant]
     Dosage: 50 MG, UNK
     Route: 041
     Dates: end: 20090125

REACTIONS (24)
  - ALANINE AMINOTRANSFERASE INCREASED [None]
  - ASPARTATE AMINOTRANSFERASE INCREASED [None]
  - BLOOD ALKALINE PHOSPHATASE INCREASED [None]
  - BLOOD CREATININE INCREASED [None]
  - BLOOD GLUCOSE INCREASED [None]
  - BLOOD LACTATE DEHYDROGENASE INCREASED [None]
  - BLOOD UREA INCREASED [None]
  - DEPRESSED LEVEL OF CONSCIOUSNESS [None]
  - EAR INFECTION [None]
  - GAMMA-GLUTAMYLTRANSFERASE INCREASED [None]
  - HAEMATOCRIT DECREASED [None]
  - HAEMOGLOBIN DECREASED [None]
  - HYDROCEPHALUS [None]
  - IMMUNODEFICIENCY [None]
  - MENINGITIS BACTERIAL [None]
  - OSTEOMYELITIS [None]
  - OSTEONECROSIS [None]
  - OTORRHOEA [None]
  - RED BLOOD CELL COUNT DECREASED [None]
  - STREPTOCOCCAL INFECTION [None]
  - TOOTH AVULSION [None]
  - TOOTH INFECTION [None]
  - TOOTH LOSS [None]
  - WHITE BLOOD CELL COUNT INCREASED [None]
